FAERS Safety Report 7333166-4 (Version None)
Quarter: 2011Q1

REPORT INFORMATION
  Report Type: 
  Country: None (occurrence: None)
  Receive Date: 20110224
  Receipt Date: 20101201
  Transmission Date: 20110831
  Serious: Yes (Hospitalization)
  Sender: FDA-Public Use
  Company Number: 2010SP063040

PATIENT
  Age: 66 Year
  Sex: Female
  Weight: 58.75 kg

DRUGS (9)
  1. PEG-INTRON [Suspect]
     Indication: HEPATITIS C
     Dosage: 60 MCG, QW, SC
     Route: 058
     Dates: start: 20090929
  2. PEG-INTRON [Suspect]
     Indication: HEPATITIS C
     Dosage: 60 MCG, QW, SC
     Route: 058
     Dates: start: 20090904, end: 20090916
  3. REBETOL [Suspect]
     Indication: HEPATITIS C
     Dosage: 600 MG, QD, PO
     Route: 048
     Dates: start: 20090904, end: 20090918
  4. REBETOL [Suspect]
     Indication: HEPATITIS C
     Dosage: 600 MG, QD, PO
     Route: 048
     Dates: start: 20090929
  5. SELARA (EPLERENONE) [Concomitant]
  6. ITOROL [Concomitant]
  7. ASPIRIN [Concomitant]
  8. SIGMART [Concomitant]
  9. FRANDOL [Concomitant]

REACTIONS (4)
  - ABNORMAL BEHAVIOUR [None]
  - AMNESIA [None]
  - DELIRIUM [None]
  - AGGRESSION [None]
